FAERS Safety Report 23302480 (Version 1)
Quarter: 2023Q4

REPORT INFORMATION
  Report Type: Spontaneous
  Country: US (occurrence: None)
  Receive Date: 20231215
  Receipt Date: 20231215
  Transmission Date: 20240110
  Serious: Yes (Other)
  Sender: FDA-Public Use
  Company Number: None

PATIENT
  Age: 27 Year
  Sex: Female
  Weight: 74.25 kg

DRUGS (3)
  1. ACETAMINOPHEN\GUAIFENESIN\PHENYLEPHRINE [Suspect]
     Active Substance: ACETAMINOPHEN\GUAIFENESIN\PHENYLEPHRINE
     Indication: Nasopharyngitis
     Dosage: OTHER QUANTITY : 1 CAPSULE(S);?FREQUENCY : EVERY 4 HOURS;?
     Route: 048
     Dates: start: 20231211, end: 20231214
  2. PRE-PROBIOTIC [Concomitant]
  3. WHEY [Concomitant]
     Active Substance: WHEY

REACTIONS (8)
  - Dyspnoea [None]
  - Wheezing [None]
  - Cough [None]
  - Vomiting [None]
  - Rash erythematous [None]
  - Hypersensitivity [None]
  - Product coating issue [None]
  - Product contamination [None]

NARRATIVE: CASE EVENT DATE: 20231212
